FAERS Safety Report 17557535 (Version 1)
Quarter: 2020Q1

REPORT INFORMATION
  Report Type: Spontaneous
  Country: FI (occurrence: FI)
  Receive Date: 20200318
  Receipt Date: 20200318
  Transmission Date: 20200409
  Serious: Yes (Disabling)
  Sender: FDA-Public Use
  Company Number: FI-MYLANLABS-2020M1028366

PATIENT
  Age: 46 Year
  Sex: Female

DRUGS (1)
  1. ZECLAR [Suspect]
     Active Substance: CLARITHROMYCIN
     Indication: SINUSITIS
     Dosage: 500 MILLIGRAM, QD (500,MG,DAILY)
     Route: 048
     Dates: start: 20200121, end: 20200128

REACTIONS (12)
  - Dysphagia [Unknown]
  - Hypoacusis [Unknown]
  - Pain in extremity [Unknown]
  - Autophony [Unknown]
  - Malaise [Unknown]
  - Dyspnoea [Unknown]
  - Tinnitus [Unknown]
  - Localised oedema [Unknown]
  - Asthenia [Unknown]
  - Heart rate increased [Unknown]
  - Ear discomfort [Unknown]
  - Head discomfort [Unknown]

NARRATIVE: CASE EVENT DATE: 20200124
